FAERS Safety Report 7229126-4 (Version None)
Quarter: 2011Q1

REPORT INFORMATION
  Report Type: 
  Country: None (occurrence: None)
  Receive Date: 20110117
  Receipt Date: 20110106
  Transmission Date: 20110831
  Serious: Yes (Other)
  Sender: FDA-Public Use
  Company Number: US-GENZYME-CLOF-1001042

PATIENT

DRUGS (6)
  1. ACYCLOVIR [Concomitant]
     Indication: PROPHYLAXIS
     Dosage: UNK
     Route: 065
  2. CIPROFLOXACIN [Concomitant]
     Indication: PROPHYLAXIS
     Dosage: UNK
     Route: 065
  3. CLOFARABINE [Suspect]
     Indication: NON-HODGKIN'S LYMPHOMA
     Dosage: 30-70 MG/M2, QDX5
     Route: 042
  4. ETOPOSIDE [Suspect]
     Indication: NON-HODGKIN'S LYMPHOMA
     Dosage: 60 MG/KG, QDX1
     Route: 042
  5. FLUCONAZOLE [Concomitant]
     Indication: PROPHYLAXIS
     Dosage: UNK
     Route: 065
  6. CYCLOPHOSPHAMIDE [Suspect]
     Indication: NON-HODGKIN'S LYMPHOMA
     Dosage: 100 MG/KG, QDX1
     Route: 042

REACTIONS (1)
  - CYSTITIS HAEMORRHAGIC [None]
